FAERS Safety Report 22219263 (Version 4)
Quarter: 2023Q2

REPORT INFORMATION
  Report Type: Spontaneous
  Country: PL (occurrence: PL)
  Receive Date: 20230417
  Receipt Date: 20230530
  Transmission Date: 20230721
  Serious: Yes (Hospitalization)
  Sender: FDA-Public Use
  Company Number: PL-VIPHPROD-PAR-139-2023

PATIENT
  Age: 49 Year
  Sex: Female

DRUGS (10)
  1. PAROXETINE [Interacting]
     Active Substance: PAROXETINE
     Indication: Depression
     Dosage: 40 MILLIGRAM, QD
     Route: 048
  2. PAROXETINE [Interacting]
     Active Substance: PAROXETINE
     Dosage: 20 MILLIGRAM, QD
     Route: 065
  3. PREGABALIN [Interacting]
     Active Substance: PREGABALIN
     Indication: Diabetic neuropathy
     Dosage: 600 MILLIGRAM, QD
     Route: 048
  4. ACETAMINOPHEN\DIPHENHYDRAMINE [Interacting]
     Active Substance: ACETAMINOPHEN\DIPHENHYDRAMINE
     Indication: Pain
     Dosage: UNK
     Route: 065
  5. ACETAMINOPHEN [Interacting]
     Active Substance: ACETAMINOPHEN
     Indication: Pain
     Dosage: 1000 MILLIGRAM
     Route: 048
  6. DIPHENHYDRAMINE [Interacting]
     Active Substance: DIPHENHYDRAMINE
     Indication: Pain
     Dosage: 25 MILLIGRAM, QD
     Route: 048
  7. DIPHENHYDRAMINE [Interacting]
     Active Substance: DIPHENHYDRAMINE
     Dosage: UNK
     Route: 065
  8. METFORMIN [Concomitant]
     Active Substance: METFORMIN HYDROCHLORIDE
     Indication: Type 2 diabetes mellitus
     Dosage: 1000 MILLIGRAM
     Route: 065
  9. ALPHA LIPOIC ACID [Concomitant]
     Active Substance: .ALPHA.-LIPOIC ACID
     Indication: Diabetic neuropathy
     Dosage: 600 MILLIGRAM, QD
     Route: 048
  10. SITAGLIPTIN [Concomitant]
     Active Substance: SITAGLIPTIN
     Indication: Type 2 diabetes mellitus
     Dosage: 100 MILLIGRAM, QD
     Route: 065

REACTIONS (6)
  - Pain [Recovered/Resolved]
  - Pain in extremity [Recovering/Resolving]
  - Burning sensation [Recovering/Resolving]
  - Palpitations [Recovered/Resolved]
  - Drug interaction [Unknown]
  - Dysaesthesia [Unknown]
